FAERS Safety Report 19504257 (Version 2)
Quarter: 2021Q3

REPORT INFORMATION
  Report Type: Report from Study
  Country: US (occurrence: US)
  Receive Date: 20210707
  Receipt Date: 20210730
  Transmission Date: 20211014
  Serious: Yes (Hospitalization)
  Sender: FDA-Public Use
  Company Number: US-JNJFOC-20210706863

PATIENT
  Age: 41 Year
  Sex: Female

DRUGS (5)
  1. LEVOTHYROXINE. [Concomitant]
     Active Substance: LEVOTHYROXINE
  2. PRISTIQ EXTENDED?RELEASE [Concomitant]
     Active Substance: DESVENLAFAXINE SUCCINATE
  3. SPRAVATO [Suspect]
     Active Substance: ESKETAMINE
     Indication: PRODUCT USED FOR UNKNOWN INDICATION
     Route: 065
  4. LITHIUM. [Concomitant]
     Active Substance: LITHIUM
  5. LATUDA [Concomitant]
     Active Substance: LURASIDONE HYDROCHLORIDE

REACTIONS (6)
  - Vomiting [Recovered/Resolved]
  - Overdose [Recovered/Resolved]
  - Condition aggravated [Not Recovered/Not Resolved]
  - Depression [Unknown]
  - Malaise [Unknown]
  - Mood altered [Unknown]

NARRATIVE: CASE EVENT DATE: 20210525
